FAERS Safety Report 9632487 (Version 3)
Quarter: 2014Q1

REPORT INFORMATION
  Report Type: Spontaneous
  Country: JP (occurrence: None)
  Receive Date: 20131016
  Receipt Date: 20140123
  Transmission Date: 20141002
  Serious: Yes (Other)
  Sender: FDA-Public Use
  Company Number: JP-013269

PATIENT
  Age: 63 Year
  Sex: Male
  Weight: 54 kg

DRUGS (4)
  1. DEGARELIX [Suspect]
     Indication: PROSTATIC SPECIFIC ANTIGEN INCREASED
     Route: 058
     Dates: start: 20130912, end: 20130912
  2. DEGARELIX [Suspect]
     Indication: PROSTATE CANCER
     Route: 058
     Dates: start: 20130912, end: 20130912
  3. LEUPLIN [Concomitant]
  4. BICALUTAMIDE [Concomitant]

REACTIONS (4)
  - Neoplasm prostate [None]
  - Urinary retention [None]
  - Prostatomegaly [None]
  - Malignant neoplasm progression [None]
